FAERS Safety Report 7896498-7 (Version None)
Quarter: 2011Q4

REPORT INFORMATION
  Report Type: 
  Country: None (occurrence: None)
  Receive Date: 20111104
  Receipt Date: 20111104
  Transmission Date: 20120403
  Serious: Yes (Other)
  Sender: FDA-Public Use
  Company Number: None

PATIENT
  Age: 42 Year
  Sex: Male
  Weight: 127.0072 kg

DRUGS (1)
  1. GEODON [Suspect]
     Indication: SCHIZOAFFECTIVE DISORDER
     Dosage: 120 DAY MG/60MG 2X DAY ORAL
     Route: 048
     Dates: start: 20100601, end: 20110601

REACTIONS (5)
  - HYPOKALAEMIA [None]
  - WEIGHT INCREASED [None]
  - THIRST [None]
  - TREMOR [None]
  - MEMORY IMPAIRMENT [None]
